FAERS Safety Report 6713420-7 (Version None)
Quarter: 2010Q2

REPORT INFORMATION
  Report Type: 
  Country: None (occurrence: None)
  Receive Date: 20100506
  Receipt Date: 20100415
  Transmission Date: 20101027
  Serious: Yes (Other)
  Sender: FDA-Public Use
  Company Number: US-ROCHE-700969

PATIENT
  Sex: Male

DRUGS (1)
  1. VALIUM [Suspect]
     Dosage: OTHER INDICATION: DIFFICULTY SLEEPING.
     Route: 065
     Dates: start: 19700101

REACTIONS (2)
  - PALPITATIONS [None]
  - SLEEP DISORDER [None]
